FAERS Safety Report 9409036 (Version 1)
Quarter: 2013Q3

REPORT INFORMATION
  Report Type: Spontaneous
  Country: US (occurrence: US)
  Receive Date: 20130719
  Receipt Date: 20130719
  Transmission Date: 20140515
  Serious: Yes (Other)
  Sender: FDA-Public Use
  Company Number: US-BIOGENIDEC-2013BI062945

PATIENT
  Sex: Female

DRUGS (1)
  1. TECFIDERA [Suspect]
     Indication: PRODUCT USED FOR UNKNOWN INDICATION
     Dates: start: 201303, end: 20130607

REACTIONS (17)
  - Dehydration [Unknown]
  - Weight decreased [Unknown]
  - Abdominal pain [Recovered/Resolved]
  - Headache [Recovered/Resolved]
  - Vision blurred [Unknown]
  - Aphagia [Unknown]
  - Muscle spasms [Unknown]
  - Clostridium difficile infection [Unknown]
  - Thinking abnormal [Unknown]
  - Visual impairment [Unknown]
  - Visual field defect [Unknown]
  - Hypoaesthesia [Unknown]
  - Speech disorder [Unknown]
  - Mental impairment [Unknown]
  - Colour blindness [Unknown]
  - Pain [Unknown]
  - Diarrhoea [Recovered/Resolved]
